FAERS Safety Report 6356949-6 (Version None)
Quarter: 2009Q3

REPORT INFORMATION
  Report Type: 
  Country: None (occurrence: None)
  Receive Date: 20090915
  Receipt Date: 20090901
  Transmission Date: 20100115
  Serious: Yes (Other)
  Sender: FDA-Public Use
  Company Number: US-ROCHE-649108

PATIENT
  Sex: Female

DRUGS (3)
  1. PEGASYS [Suspect]
     Indication: HEPATITIS C
     Dosage: FORM: PRE-FILLED SYRINGE, OFF FOR TWO WEEKS
     Route: 058
     Dates: start: 20090707
  2. PEGASYS [Suspect]
     Dosage: FORM: PRE-FILLED SYRINGE
     Route: 058
     Dates: start: 20090824
  3. COPEGUS [Suspect]
     Indication: HEPATITIS C
     Dosage: DOSAGE: 600 IN THE MORNING AND 600 IN THE EVENING.
     Route: 048
     Dates: start: 20090707

REACTIONS (10)
  - ASTHENIA [None]
  - ATRIAL FIBRILLATION [None]
  - BLOOD PRESSURE DECREASED [None]
  - BLOOD TEST ABNORMAL [None]
  - DECREASED APPETITE [None]
  - DIARRHOEA [None]
  - EAR INFECTION [None]
  - LOSS OF CONSCIOUSNESS [None]
  - NAUSEA [None]
  - VOMITING [None]
